FAERS Safety Report 6831179-X (Version None)
Quarter: 2010Q3

REPORT INFORMATION
  Report Type: 
  Country: None (occurrence: None)
  Receive Date: 20100709
  Receipt Date: 20100709
  Transmission Date: 20110219
  Serious: Yes (Life-Threatening, Hospitalization)
  Sender: FDA-Public Use
  Company Number: None

PATIENT
  Age: 18 Year
  Sex: Female
  Weight: 40 kg

DRUGS (2)
  1. ETANERCEPT [Suspect]
     Indication: INFUSION
     Dosage: 25 MG TWICE WEEKLY SQ
     Dates: start: 20070201, end: 20091101
  2. INFLIXIMAB [Suspect]
     Indication: INTESTINAL POLYP
     Dosage: MONTHLY IV
     Route: 042
     Dates: start: 20050115, end: 20050615

REACTIONS (5)
  - ABDOMINAL PAIN [None]
  - COLON CANCER [None]
  - DIARRHOEA HAEMORRHAGIC [None]
  - INFUSION RELATED REACTION [None]
  - INTESTINAL POLYP [None]
